FAERS Safety Report 21122890 (Version 1)
Quarter: 2022Q3

REPORT INFORMATION
  Report Type: Other
  Country: CN (occurrence: None)
  Receive Date: 20220723
  Receipt Date: 20220723
  Transmission Date: 20221027
  Serious: Yes (Other)
  Sender: FDA-Public Use
  Company Number: CN-ROCHE-3144365

PATIENT

DRUGS (4)
  1. BEVACIZUMAB [Suspect]
     Active Substance: BEVACIZUMAB
     Indication: Rectal cancer
     Dosage: BEVACIZUMAB SPECIFICATION-100 MG (4 ML), INJECTION. WAS ADMINISTERED BY INTRAVENOUS DRIP ON THE FIRS
     Route: 041
  2. CAPECITABINE [Suspect]
     Active Substance: CAPECITABINE
     Indication: Rectal cancer
     Dosage: CAPECITABINE SPECIFICATION TABLETS, 0.5GX12 TABLET WAS ADMINISTERED ORALLY TWICE A DAY, 2.5 G/(M2 TI
     Route: 048
  3. OXALIPLATIN [Suspect]
     Active Substance: OXALIPLATIN
     Indication: Rectal cancer
     Dosage: OXALIPLATIN SPECIFICATION 50MG, INJECTION, WAS TREATED WITH INJECTION, MIXED WITH GLUCOSE INJECTION
     Route: 041
  4. DEXTROSE [Concomitant]
     Active Substance: DEXTROSE
     Route: 041

REACTIONS (1)
  - Myelosuppression [Unknown]
